FAERS Safety Report 23086900 (Version 4)
Quarter: 2023Q4

REPORT INFORMATION
  Report Type: Report from Study
  Country: US (occurrence: US)
  Receive Date: 20231020
  Receipt Date: 20231205
  Transmission Date: 20240109
  Serious: Yes (Other)
  Sender: FDA-Public Use
  Company Number: US-ACADIA PHARMACEUTICALS INC.-ACA-2023-TRF-004355

PATIENT
  Age: 4 Year
  Sex: Female

DRUGS (7)
  1. DAYBUE [Suspect]
     Active Substance: TROFINETIDE
     Indication: Rett syndrome
     Dosage: 40 MILLILITER, BID
     Route: 048
     Dates: start: 20230820, end: 20231003
  2. DAYBUE [Suspect]
     Active Substance: TROFINETIDE
     Dosage: 15 MILLILITER, BID
     Route: 048
     Dates: start: 20231008
  3. DAYBUE [Suspect]
     Active Substance: TROFINETIDE
     Dosage: 20 MILLILITER, BID
     Route: 048
  4. DAYBUE [Suspect]
     Active Substance: TROFINETIDE
     Dosage: 25 MILLILITER, BID
     Route: 048
  5. DAYBUE [Suspect]
     Active Substance: TROFINETIDE
     Dosage: 30 MILLILITER, BID
     Route: 048
  6. EPIDIOLEX [Concomitant]
     Active Substance: CANNABIDIOL
     Dosage: 10 MG/ KG PER DAY
  7. PROBIOTICS NOS [Concomitant]
     Active Substance: PROBIOTICS NOS

REACTIONS (13)
  - Haematemesis [Recovered/Resolved]
  - Intermenstrual bleeding [Unknown]
  - Product use complaint [Not Recovered/Not Resolved]
  - Feeling abnormal [Unknown]
  - Hypophagia [Unknown]
  - Oxygen saturation decreased [Unknown]
  - Heart rate decreased [Unknown]
  - Underdose [Not Recovered/Not Resolved]
  - Abdominal pain upper [Unknown]
  - Crying [Unknown]
  - Gastrooesophageal reflux disease [Not Recovered/Not Resolved]
  - Diarrhoea [Recovered/Resolved]
  - Diarrhoea [Not Recovered/Not Resolved]

NARRATIVE: CASE EVENT DATE: 20231008
